FAERS Safety Report 6361916-2 (Version None)
Quarter: 2009Q3

REPORT INFORMATION
  Report Type: 
  Country: None (occurrence: None)
  Receive Date: 20090915
  Receipt Date: 20090831
  Transmission Date: 20100115
  Serious: Yes (Hospitalization)
  Sender: FDA-Public Use
  Company Number: 2009002631

PATIENT
  Age: 67 Year
  Sex: Female

DRUGS (6)
  1. ERLOTINIB / PLACEBO (ERLOTINIB HCI) (TABLET) (ERLOTINIB HCI) [Suspect]
     Indication: NON-SMALL CELL LUNG CANCER
     Dosage: QD, ORAL
     Route: 048
     Dates: start: 20090602
  2. GEMCITABINE [Suspect]
     Indication: NON-SMALL CELL LUNG CANCER
     Dosage: 2 MG, QD, INTRAVENOUS
     Route: 042
     Dates: start: 20090519, end: 20090821
  3. CARBOPLATIN [Suspect]
     Indication: NON-SMALL CELL LUNG CANCER
     Dosage: 500 MG, QD, INTRAVENOUS
     Route: 042
     Dates: start: 20090519, end: 20090821
  4. FERROUS SULFATE TAB [Concomitant]
  5. ASCORBIC ACID [Concomitant]
  6. MULTI-VITAMIN [Concomitant]

REACTIONS (1)
  - ANAEMIA [None]
